FAERS Safety Report 7395590-3 (Version None)
Quarter: 2011Q2

REPORT INFORMATION
  Report Type: 
  Country: None (occurrence: None)
  Receive Date: 20110405
  Receipt Date: 20110401
  Transmission Date: 20111010
  Serious: Yes (Other)
  Sender: FDA-Public Use
  Company Number: FR-ROXANE LABORATORIES, INC.-2011-RO-00447RO

PATIENT
  Age: 74 Year
  Sex: Female
  Weight: 60 kg

DRUGS (3)
  1. ADRENALIN IN OIL INJ [Suspect]
     Indication: NERVE BLOCK
  2. FLECAINIDE [Suspect]
     Indication: ATRIAL TACHYCARDIA
  3. LIDOCAINE [Suspect]
     Indication: NERVE BLOCK
     Dosage: 400 MG

REACTIONS (1)
  - TOXICITY TO VARIOUS AGENTS [None]
